FAERS Safety Report 15553869 (Version 1)
Quarter: 2018Q4

REPORT INFORMATION
  Report Type: Spontaneous
  Country: US (occurrence: US)
  Receive Date: 20181026
  Receipt Date: 20181026
  Transmission Date: 20190205
  Serious: No
  Sender: FDA-Public Use
  Company Number: US-UNITED THERAPEUTICS-UNT-2018-017521

PATIENT
  Sex: Female
  Weight: 99.77 kg

DRUGS (1)
  1. ORENITRAM [Suspect]
     Active Substance: TREPROSTINIL
     Indication: PULMONARY HYPERTENSION
     Dosage: 2.5 MG, BID
     Route: 048
     Dates: start: 20150106

REACTIONS (1)
  - Therapy non-responder [Unknown]
